FAERS Safety Report 6225049-8 (Version None)
Quarter: 2009Q2

REPORT INFORMATION
  Report Type: 
  Country: None (occurrence: None)
  Receive Date: 20090612
  Receipt Date: 20090406
  Transmission Date: 20091009
  Serious: No
  Sender: FDA-Public Use
  Company Number: US-ABBOTT-09P-163-0566745-00

PATIENT
  Sex: Female
  Weight: 60.836 kg

DRUGS (3)
  1. HUMIRA [Suspect]
     Indication: RHEUMATOID ARTHRITIS
     Route: 058
     Dates: start: 20030101, end: 20080101
  2. HUMIRA [Suspect]
     Route: 058
     Dates: start: 20090301, end: 20090301
  3. NAPROXEN [Concomitant]
     Indication: DRUG USE FOR UNKNOWN INDICATION

REACTIONS (4)
  - ARTHRALGIA [None]
  - INSOMNIA [None]
  - MALAISE [None]
  - OEDEMA PERIPHERAL [None]
